FAERS Safety Report 17873724 (Version 1)
Quarter: 2020Q2

REPORT INFORMATION
  Report Type: Spontaneous
  Country: JP (occurrence: JP)
  Receive Date: 20200609
  Receipt Date: 20200609
  Transmission Date: 20200714
  Serious: Yes (Other)
  Sender: FDA-Public Use
  Company Number: JP-NVP-000012

PATIENT
  Age: 59 Year

DRUGS (1)
  1. ACETAZOLAMIDE. [Suspect]
     Active Substance: ACETAZOLAMIDE
     Indication: DRUG PROVOCATION TEST
     Route: 065

REACTIONS (3)
  - Disorientation [Recovering/Resolving]
  - Product use in unapproved indication [Unknown]
  - Cerebral hyperperfusion syndrome [Recovering/Resolving]
